FAERS Safety Report 5226052-7 (Version None)
Quarter: 2007Q1

REPORT INFORMATION
  Report Type: 
  Country: None (occurrence: None)
  Receive Date: 20070129
  Receipt Date: 20070123
  Transmission Date: 20070707
  Serious: Yes (Death)
  Sender: FDA-Public Use
  Company Number: 2007SP000595

PATIENT
  Age: 67 Year
  Sex: Male

DRUGS (3)
  1. TEMODAL [Suspect]
     Indication: ANAPLASTIC ASTROCYTOMA
     Dosage: 220 MG;QD;PO
     Route: 048
     Dates: start: 20061121, end: 20061125
  2. TEMODAL [Suspect]
     Indication: RECURRENT CANCER
     Dosage: 220 MG;QD;PO
     Route: 048
     Dates: start: 20061121, end: 20061125
  3. STEROID DRUG [Concomitant]

REACTIONS (6)
  - CENTRAL NERVOUS SYSTEM NECROSIS [None]
  - IMMUNODEFICIENCY [None]
  - LYMPHOCYTE COUNT DECREASED [None]
  - PNEUMONIA [None]
  - RESPIRATORY DISORDER [None]
  - URINARY TRACT INFECTION [None]
